FAERS Safety Report 14554667 (Version 1)
Quarter: 2018Q1

REPORT INFORMATION
  Report Type: Spontaneous
  Country: IL (occurrence: IL)
  Receive Date: 20180220
  Receipt Date: 20180220
  Transmission Date: 20180509
  Serious: Yes (Death, Other)
  Sender: FDA-Public Use
  Company Number: PHHY2018IL028417

PATIENT
  Age: 63 Year
  Sex: Female

DRUGS (6)
  1. ICODEXTRIN [Suspect]
     Active Substance: ICODEXTRIN
     Indication: CARDIAC FAILURE CONGESTIVE
     Route: 065
  2. GLUCOSE [Concomitant]
     Active Substance: DEXTROSE
     Indication: FLUID OVERLOAD
  3. FUROSEMIDE. [Suspect]
     Active Substance: FUROSEMIDE
     Indication: CARDIAC FAILURE CONGESTIVE
     Route: 065
  4. GLUCOSE [Concomitant]
     Active Substance: DEXTROSE
     Indication: CARDIAC FAILURE CONGESTIVE
     Dosage: EXCHANGE PER DAY FOR 6 WEEKS
     Route: 065
  5. ICODEXTRIN [Suspect]
     Active Substance: ICODEXTRIN
     Indication: FLUID OVERLOAD
  6. FUROSEMIDE. [Suspect]
     Active Substance: FUROSEMIDE
     Indication: FLUID OVERLOAD

REACTIONS (4)
  - Hyponatraemia [Recovering/Resolving]
  - Asthenia [Unknown]
  - Cardiac failure congestive [Fatal]
  - Fatigue [Unknown]
